FAERS Safety Report 5694401-1 (Version None)
Quarter: 2008Q2

REPORT INFORMATION
  Report Type: 
  Country: None (occurrence: None)
  Receive Date: 20080402
  Receipt Date: 20080319
  Transmission Date: 20081010
  Serious: Yes (Hospitalization)
  Sender: FDA-Public Use
  Company Number: TCI2008A01410

PATIENT
  Age: 34 Year
  Sex: Female

DRUGS (3)
  1. ACTOS [Suspect]
     Indication: DIABETES MELLITUS
     Dosage: 30 MG (15 MG, 2 IN 1 D) PER ORAL; 360 MG (360 MG, 1 IN 1 D) PER ORAL;
     Route: 048
     Dates: end: 20080316
  2. ACTOS [Suspect]
     Indication: DIABETES MELLITUS
     Dosage: 30 MG (15 MG, 2 IN 1 D) PER ORAL; 360 MG (360 MG, 1 IN 1 D) PER ORAL;
     Route: 048
     Dates: start: 20080317, end: 20080317
  3. AMARYL [Concomitant]

REACTIONS (2)
  - HYPOGLYCAEMIA [None]
  - MULTIPLE DRUG OVERDOSE [None]
